FAERS Safety Report 7315956-7 (Version None)
Quarter: 2011Q1

REPORT INFORMATION
  Report Type: 
  Country: None (occurrence: None)
  Receive Date: 20110225
  Receipt Date: 20110215
  Transmission Date: 20110831
  Serious: Yes (Disabling, Other)
  Sender: FDA-Public Use
  Company Number: GB-TEVA-267887ISR

PATIENT
  Sex: Male
  Weight: 63 kg

DRUGS (1)
  1. DOXYCYCLINE [Suspect]
     Dates: start: 20110208

REACTIONS (3)
  - RASH [None]
  - PRURITUS [None]
  - AMOEBIC DYSENTERY [None]
